FAERS Safety Report 7741284-1 (Version None)
Quarter: 2011Q3

REPORT INFORMATION
  Report Type: 
  Country: None (occurrence: None)
  Receive Date: 20110909
  Receipt Date: 20110830
  Transmission Date: 20111222
  Serious: Yes (Hospitalization)
  Sender: FDA-Public Use
  Company Number: US-ELI_LILLY_AND_COMPANY-US201108004906

PATIENT
  Sex: Female
  Weight: 107.3 kg

DRUGS (6)
  1. METFORMIN [Concomitant]
     Indication: TYPE 2 DIABETES MELLITUS
  2. ACTOS [Concomitant]
     Indication: TYPE 2 DIABETES MELLITUS
     Dosage: UNK
  3. BYETTA [Suspect]
     Indication: TYPE 2 DIABETES MELLITUS
     Dosage: 5 UG, BID
     Route: 058
  4. NOVOLOG [Concomitant]
     Indication: TYPE 2 DIABETES MELLITUS
     Dosage: UNK
     Route: 058
  5. CALCIUM CARBONATE [Concomitant]
     Indication: ABDOMINAL DISCOMFORT
     Dosage: UNK, BID
     Route: 048
     Dates: end: 20110801
  6. LANTUS [Concomitant]
     Indication: TYPE 2 DIABETES MELLITUS
     Dosage: UNK, EACH EVENING
     Route: 058

REACTIONS (10)
  - NAUSEA [None]
  - FOOD AVERSION [None]
  - OFF LABEL USE [None]
  - ABDOMINAL PAIN [None]
  - DEHYDRATION [None]
  - WEIGHT DECREASED [None]
  - NEPHROLITHIASIS [None]
  - DIARRHOEA [None]
  - BLOOD CALCIUM INCREASED [None]
  - DYSPEPSIA [None]
